FAERS Safety Report 10156148 (Version 2)
Quarter: 2014Q2

REPORT INFORMATION
  Report Type: Report from Study
  Country: US (occurrence: US)
  Receive Date: 20140506
  Receipt Date: 20140604
  Transmission Date: 20141212
  Serious: Yes (Hospitalization)
  Sender: FDA-Public Use
  Company Number: US-ACTELION-A-NJ2014-98186

PATIENT
  Age: 2 Year
  Sex: Female

DRUGS (12)
  1. TRACLEER [Suspect]
     Indication: PULMONARY ARTERIAL HYPERTENSION
     Dosage: 6.25 MG, BID
     Route: 048
     Dates: start: 20121114
  2. SILDENAFIL [Concomitant]
     Dosage: 9 MG EVERY 8 HOURS
     Route: 048
  3. ASA [Concomitant]
     Dosage: 40.5 MG, UNK
     Route: 048
  4. DIURIL [Concomitant]
     Dosage: 90 MG, Q12HRS
     Route: 048
  5. LACTOBACILLUS [Concomitant]
     Dosage: 1/2 CAPSULE BID
     Route: 048
  6. PREVACID [Concomitant]
     Dosage: 7.5 MG, BID
     Route: 048
  7. KCL [Concomitant]
     Dosage: 6.5 MEQ, EVERY 8 HOURS
     Route: 048
  8. ALDACTONE [Concomitant]
     Dosage: 8 MG, Q12HRS
     Route: 048
  9. NYSTATIN [Concomitant]
  10. PULMICORT [Concomitant]
     Dosage: 0.5 MG, BID
     Route: 048
  11. XOPENEX [Concomitant]
  12. PULMOZYME [Concomitant]
     Dosage: UNK, Q12HRS

REACTIONS (2)
  - Viral infection [Recovering/Resolving]
  - Nasopharyngitis [Recovering/Resolving]
